FAERS Safety Report 8164888 (Version 6)
Quarter: 2013Q2

REPORT INFORMATION
  Report Type: Spontaneous
  Country: US (occurrence: US)
  Receive Date: 20111003
  Receipt Date: 20130606
  Transmission Date: 20140414
  Serious: Yes (Hospitalization)
  Sender: FDA-Public Use
  Company Number: US-BIOGENIDEC-2011BI036776

PATIENT
  Age: 49 Year
  Sex: Female

DRUGS (1)
  1. AVONEX [Suspect]
     Indication: MULTIPLE SCLEROSIS
     Route: 030
     Dates: start: 20011019, end: 201109

REACTIONS (4)
  - Pulmonary embolism [Recovered/Resolved]
  - Coma [Recovered/Resolved]
  - Incoherent [Recovered/Resolved]
  - Influenza like illness [Recovered/Resolved]
